FAERS Safety Report 6696700-3 (Version None)
Quarter: 2010Q2

REPORT INFORMATION
  Report Type: 
  Country: None (occurrence: None)
  Receive Date: 20100426
  Receipt Date: 20100419
  Transmission Date: 20101027
  Serious: Yes (Other)
  Sender: FDA-Public Use
  Company Number: PL-JNJFOC-20100108039

PATIENT
  Sex: Male

DRUGS (9)
  1. REMICADE [Suspect]
     Indication: CROHN'S DISEASE
     Route: 042
  2. REMICADE [Suspect]
     Route: 042
  3. IMURAN [Concomitant]
     Indication: CROHN'S DISEASE
     Route: 048
  4. POLPRAZOL [Concomitant]
     Indication: CROHN'S DISEASE
     Route: 048
  5. ALL OTHER THERAPEUTIC PRODUCTS [Concomitant]
     Indication: CROHN'S DISEASE
     Route: 048
  6. METYPRED [Concomitant]
     Indication: PREMEDICATION
     Route: 048
  7. METYPRED [Concomitant]
     Route: 048
  8. METYPRED [Concomitant]
     Indication: CROHN'S DISEASE
     Route: 048
  9. METYPRED [Concomitant]
     Route: 048

REACTIONS (7)
  - ANXIETY [None]
  - DYSPNOEA [None]
  - ERYTHEMA [None]
  - INFUSION RELATED REACTION [None]
  - NASAL CONGESTION [None]
  - THROAT IRRITATION [None]
  - URTICARIA [None]
